FAERS Safety Report 7961248-2 (Version None)
Quarter: 2011Q4

REPORT INFORMATION
  Report Type: 
  Country: None (occurrence: None)
  Receive Date: 20111207
  Receipt Date: 20110119
  Transmission Date: 20120403
  Serious: No
  Sender: FDA-Public Use
  Company Number: US-GLAXOSMITHKLINE-A0907394A

PATIENT
  Age: 57 Year
  Sex: Female

DRUGS (2)
  1. NO CONCURRENT MEDICATION [Concomitant]
  2. EVOCLIN [Suspect]
     Indication: HYPERTRICHOSIS
     Dosage: 1APP TWICE PER DAY
     Route: 061
     Dates: start: 20080701

REACTIONS (2)
  - HAIR GROWTH ABNORMAL [None]
  - THERAPEUTIC RESPONSE UNEXPECTED [None]
